FAERS Safety Report 9245227 (Version 2)
Quarter: 2013Q2

REPORT INFORMATION
  Report Type: Spontaneous
  Country: US (occurrence: US)
  Receive Date: 20130422
  Receipt Date: 20130424
  Transmission Date: 20140414
  Serious: Yes (Other)
  Sender: FDA-Public Use
  Company Number: US-PFIZER INC-2013124842

PATIENT
  Age: 48 Year
  Sex: Female
  Weight: 55.33 kg

DRUGS (3)
  1. NEURONTIN [Suspect]
     Indication: FIBROMYALGIA
     Dosage: UNK
     Route: 048
  2. RELPAX [Concomitant]
     Dosage: UNK
  3. SEROQUEL [Concomitant]
     Indication: BIPOLAR DISORDER
     Dosage: 50 MG, UNK

REACTIONS (8)
  - Pain [Unknown]
  - Drug intolerance [Unknown]
  - Feeling hot [Unknown]
  - Pain in extremity [Unknown]
  - Neck pain [Unknown]
  - Back pain [Unknown]
  - Feeling abnormal [Unknown]
  - Off label use [Unknown]
